FAERS Safety Report 4727943-3 (Version None)
Quarter: 2005Q3

REPORT INFORMATION
  Report Type: 
  Country: None (occurrence: None)
  Receive Date: 20050725
  Receipt Date: 20050323
  Transmission Date: 20060218
  Serious: No
  Sender: FDA-Public Use
  Company Number: USA050393953

PATIENT
  Age: 7 Year
  Sex: Female

DRUGS (1)
  1. STRATTERA [Suspect]
     Dosage: 25 MG
     Dates: start: 20050322

REACTIONS (5)
  - MALAISE [None]
  - PALLOR [None]
  - PALPITATIONS [None]
  - SOMNOLENCE [None]
  - TREMOR [None]
